FAERS Safety Report 7638628-8 (Version None)
Quarter: 2011Q3

REPORT INFORMATION
  Report Type: 
  Country: None (occurrence: None)
  Receive Date: 20110727
  Receipt Date: 20110726
  Transmission Date: 20111222
  Serious: Yes (Life-Threatening, Other)
  Sender: FDA-Public Use
  Company Number: US-PFIZER INC-2011170015

PATIENT
  Sex: Female

DRUGS (3)
  1. PHENYTOIN SODIUM CAP [Suspect]
     Indication: CONVULSION
     Dosage: 100 MG, 3X/DAY
     Route: 048
     Dates: end: 20110701
  2. DILANTIN [Suspect]
     Indication: CONVULSION
     Dosage: UNK
     Route: 048
     Dates: start: 19810101
  3. DILANTIN [Suspect]
     Dosage: 100 MG, 3X/DAY
     Route: 048

REACTIONS (4)
  - CONVULSION [None]
  - VOMITING [None]
  - DRUG INEFFECTIVE [None]
  - COLON CANCER [None]
